FAERS Safety Report 7276185-9 (Version None)
Quarter: 2011Q1

REPORT INFORMATION
  Report Type: 
  Country: None (occurrence: None)
  Receive Date: 20110204
  Receipt Date: 20110126
  Transmission Date: 20110831
  Serious: Yes (Other)
  Sender: FDA-Public Use
  Company Number: PHHY2008US37179

PATIENT
  Sex: Male

DRUGS (3)
  1. PROCRIT [Concomitant]
     Indication: MYELODYSPLASTIC SYNDROME
     Dosage: 60 K QOW
     Dates: end: 20101201
  2. EXJADE [Suspect]
     Indication: MYELODYSPLASTIC SYNDROME
     Dosage: 500 MG, QD
     Route: 048
     Dates: start: 20080908, end: 20101201
  3. ANDROGEL [Concomitant]
     Indication: HYPOGONADISM MALE
     Route: 062

REACTIONS (6)
  - HOT FLUSH [None]
  - CHEST PAIN [None]
  - ABDOMINAL PAIN [None]
  - MYALGIA [None]
  - ARTHRALGIA [None]
  - DYSPNOEA [None]
